FAERS Safety Report 9193162 (Version 2)
Quarter: 2013Q2

REPORT INFORMATION
  Report Type: Report from Study
  Country: US (occurrence: US)
  Receive Date: 20130327
  Receipt Date: 20130405
  Transmission Date: 20140414
  Serious: Yes (Other)
  Sender: FDA-Public Use
  Company Number: US-PURDUE-USA-2013-0100241

PATIENT
  Sex: Female

DRUGS (1)
  1. OXYCONTIN TABLETS [Suspect]
     Indication: PAIN
     Dosage: 160 MG, BID
     Route: 048
     Dates: start: 2003

REACTIONS (4)
  - Neck surgery [Not Recovered/Not Resolved]
  - Surgery [Not Recovered/Not Resolved]
  - Limb operation [Not Recovered/Not Resolved]
  - Pain [Not Recovered/Not Resolved]
